FAERS Safety Report 13946465 (Version 1)
Quarter: 2017Q3

REPORT INFORMATION
  Report Type: Spontaneous
  Country: FR (occurrence: FR)
  Receive Date: 20170907
  Receipt Date: 20170907
  Transmission Date: 20171128
  Serious: Yes (Other)
  Sender: FDA-Public Use
  Company Number: PHHY2017FR103464

PATIENT
  Age: 74 Year
  Sex: Male
  Weight: 83 kg

DRUGS (2)
  1. ENTRESTO [Suspect]
     Active Substance: SACUBITRIL\VALSARTAN
     Dosage: 50 MG (24/26 MG), BID
     Route: 048
     Dates: start: 20170807
  2. ENTRESTO [Suspect]
     Active Substance: SACUBITRIL\VALSARTAN
     Indication: CARDIAC FAILURE
     Dosage: 200 MG (97/103 MG), BID
     Route: 048
     Dates: start: 20170622, end: 20170804

REACTIONS (7)
  - Oedema peripheral [Recovered/Resolved]
  - Orthostatic hypotension [Unknown]
  - Diarrhoea [Recovered/Resolved]
  - Vertigo [Not Recovered/Not Resolved]
  - Blood creatinine increased [Unknown]
  - Dyspnoea [Recovered/Resolved]
  - Creatinine renal clearance decreased [Unknown]

NARRATIVE: CASE EVENT DATE: 20170622
